FAERS Safety Report 7081683-7 (Version None)
Quarter: 2010Q4

REPORT INFORMATION
  Report Type: 
  Country: None (occurrence: None)
  Receive Date: 20101103
  Receipt Date: 20101028
  Transmission Date: 20110411
  Serious: Yes (Hospitalization)
  Sender: FDA-Public Use
  Company Number: US-PERRIGO-10US008918

PATIENT
  Sex: Female
  Weight: 66.213 kg

DRUGS (22)
  1. IBUPROFEN [Suspect]
     Indication: NECK PAIN
     Dosage: 200-600 MG, EVERY 6 TO 8 HOURS
     Route: 048
     Dates: start: 20000401
  2. IBUPROFEN [Suspect]
     Indication: BACK PAIN
  3. IBUPROFEN [Concomitant]
     Indication: HEADACHE
     Dosage: UNK, INTERMITTENTLY
     Route: 048
     Dates: start: 19680401, end: 20000401
  4. IBUPROFEN [Concomitant]
     Indication: PAIN
  5. DILAUDID [Concomitant]
     Indication: NECK PAIN
     Dosage: UNK, PAIN PUMP
     Route: 037
     Dates: start: 20030419
  6. DILAUDID [Concomitant]
     Indication: BACK PAIN
  7. MUSCLE RELAXANTS [Concomitant]
     Indication: NECK PAIN
     Dosage: UNK, PAIN PUMP
     Route: 037
     Dates: start: 20030419
  8. MUSCLE RELAXANTS [Concomitant]
     Indication: BACK PAIN
  9. ZANAFLEX [Concomitant]
     Indication: NECK PAIN
     Dosage: 2 MG, TID, PRN
     Route: 048
     Dates: start: 20030419
  10. ZANAFLEX [Concomitant]
     Indication: BACK PAIN
  11. THEOPHYLLINE [Concomitant]
     Indication: ASTHMA
     Dosage: 300 MG, QD
     Route: 048
     Dates: start: 19580419
  12. OMEPRAZOLE [Concomitant]
     Indication: GASTRIC DISORDER
     Dosage: 40 MG, QD
     Route: 048
     Dates: start: 19960419
  13. SEROQUEL [Concomitant]
     Dosage: 200 MG, QD AT BEDTIME
     Route: 048
     Dates: start: 20020419
  14. PREMARIN [Concomitant]
     Indication: HORMONE REPLACEMENT THERAPY
     Dosage: .625 MG, QD, PRN
     Route: 048
     Dates: start: 19750419
  15. HYDROCORTISONE [Concomitant]
     Indication: ADDISON'S DISEASE
     Dosage: 10 MG, QD IN AM
     Route: 048
     Dates: start: 20091019
  16. CETIRIZINE HCL [Concomitant]
     Indication: SEASONAL ALLERGY
     Dosage: 1 TABLET, DAILY
     Route: 048
     Dates: start: 20100418
  17. XANAX [Concomitant]
     Indication: ANXIETY
     Dosage: 1 MG, QD
  18. IMITREX [Concomitant]
     Indication: MIGRAINE
     Dosage: 100 MG, PRN
     Route: 048
  19. FIORICET [Concomitant]
     Indication: HEADACHE
     Dosage: 1 TABLET AS NEEDED Q8 HOURS PRN
     Route: 048
  20. NEURONTIN [Concomitant]
     Indication: PRODUCT USED FOR UNKNOWN INDICATION
     Dosage: 400 MG, SINGLE
     Route: 048
  21. PREDNISONE [Concomitant]
     Dosage: 10 MG IN AM, 5 MG INPM
     Route: 048
  22. TRAZODONE [Concomitant]
     Dosage: 150 MG @ HS

REACTIONS (6)
  - AGGRESSION [None]
  - COMA [None]
  - INCORRECT DOSE ADMINISTERED [None]
  - INCORRECT DRUG ADMINISTRATION DURATION [None]
  - PERSONALITY CHANGE [None]
  - RENAL FAILURE ACUTE [None]
